FAERS Safety Report 19448246 (Version 1)
Quarter: 2021Q2

REPORT INFORMATION
  Report Type: Spontaneous
  Country: GR (occurrence: GR)
  Receive Date: 20210622
  Receipt Date: 20210622
  Transmission Date: 20210717
  Serious: Yes (Other)
  Sender: FDA-Public Use
  Company Number: GR-ACCORD-228440

PATIENT
  Age: 31 Year
  Sex: Male

DRUGS (6)
  1. PACLITAXEL/PACLITAXEL LIPOSOME [Suspect]
     Active Substance: PACLITAXEL
     Indication: TESTICULAR GERM CELL CANCER
     Route: 065
  2. GEMCITABINE. [Suspect]
     Active Substance: GEMCITABINE
     Indication: ADJUVANT THERAPY
     Dosage: UNK, QCY
  3. TAXOL [Suspect]
     Active Substance: PACLITAXEL
     Indication: ADJUVANT THERAPY
  4. GEMCITABINE HYDROCHLORIDE. [Suspect]
     Active Substance: GEMCITABINE HYDROCHLORIDE
     Indication: ADJUVANT THERAPY
     Dosage: UNK UNK, QCY
  5. IRINOTECAN [Suspect]
     Active Substance: IRINOTECAN
     Indication: TESTICULAR GERM CELL CANCER
     Route: 065
  6. OXALIPLATIN. [Suspect]
     Active Substance: OXALIPLATIN
     Indication: TESTICULAR GERM CELL CANCER
     Route: 065

REACTIONS (3)
  - Off label use [Unknown]
  - Teratoma benign [Unknown]
  - Disease progression [Unknown]
